FAERS Safety Report 13388801 (Version 1)
Quarter: 2017Q1

REPORT INFORMATION
  Report Type: Spontaneous
  Country: AU (occurrence: AU)
  Receive Date: 20170330
  Receipt Date: 20170330
  Transmission Date: 20170429
  Serious: Yes (Hospitalization)
  Sender: FDA-Public Use
  Company Number: AU-GALDERMA-AU17001935

PATIENT
  Age: 58 Year
  Sex: Male

DRUGS (1)
  1. MIRVASO [Suspect]
     Active Substance: BRIMONIDINE TARTRATE
     Indication: RASH
     Route: 061

REACTIONS (5)
  - Dizziness [Unknown]
  - Incorrect dose administered [Recovered/Resolved]
  - Malaise [Unknown]
  - Intentional product use issue [Recovered/Resolved]
  - Blood pressure fluctuation [Recovering/Resolving]
